FAERS Safety Report 8987152 (Version 1)
Quarter: 2012Q4

REPORT INFORMATION
  Report Type: 
  Country: TW (occurrence: TW)
  Receive Date: 20121226
  Receipt Date: 20121226
  Transmission Date: 20130627
  Serious: Yes (Death)
  Sender: FDA-Public Use
  Company Number: TW-BAXTER-2012BAX028085

PATIENT
  Sex: Male

DRUGS (4)
  1. CALCIUM CHLORIDE\DEXTROSE\MAGNESIUM CHLORIDE\SODIUM CHLORIDE\SODIUM LACTATE [Suspect]
     Indication: CONTINUOUS AMBULATORY PERITONEAL DIALYSIS
     Route: 033
  2. CALCIUM CHLORIDE\DEXTROSE\MAGNESIUM CHLORIDE\SODIUM CHLORIDE\SODIUM LACTATE [Suspect]
     Indication: AUTOMATED PERITONEAL DIALYSIS
  3. DIANEAL LOW CALCIUM (2.5 MEQ/L) PD SOLUTION WITH 2.5% DEXTROSE ^BAXTER [Suspect]
     Indication: CONTINUOUS AMBULATORY PERITONEAL DIALYSIS
     Route: 033
  4. DIANEAL LOW CALCIUM (2.5 MEQ/L) PD SOLUTION WITH 2.5% DEXTROSE ^BAXTER [Suspect]
     Indication: AUTOMATED PERITONEAL DIALYSIS

REACTIONS (1)
  - Death [Fatal]
